FAERS Safety Report 5388687-0 (Version None)
Quarter: 2007Q3

REPORT INFORMATION
  Report Type: 
  Country: None (occurrence: None)
  Receive Date: 20070712
  Receipt Date: 20070507
  Transmission Date: 20080115
  Serious: Yes (Disabling, Other)
  Sender: FDA-Public Use
  Company Number: CH-GUERBET-20070009

PATIENT
  Age: 67 Year
  Sex: Female

DRUGS (5)
  1. DOTAREM: / GADOTERIC ACID [Suspect]
     Indication: ANGIOGRAM
     Dosage: 20, ML MILLITRE (S), 1,  INTRAVENOUS (NOT OTHERWISE SPECIFIED)
     Route: 042
     Dates: start: 20040128, end: 20040128
  2. DOTAREM: / GADOTERIC ACID [Suspect]
     Indication: ANGIOGRAM
     Dosage: 20, ML MILLITRE (S), 1,  INTRAVENOUS (NOT OTHERWISE SPECIFIED)
     Route: 042
     Dates: start: 20040809, end: 20040809
  3. DOTAREM: / GADOTERIC ACID [Suspect]
     Indication: NUCLEAR MAGNETIC RESONANCE IMAGING
     Dosage: 20, ML MILLITRE (S), 1,  INTRAVENOUS (NOT OTHERWISE SPECIFIED)
     Dates: start: 20050706, end: 20070706
  4. GADOVIST / GADOBUTROL [Concomitant]
  5. IOPAMIDOL  300 MG/ML / IOPAMIDOL [Concomitant]

REACTIONS (5)
  - ARTERIAL BYPASS OPERATION [None]
  - ARTERIOSCLEROSIS [None]
  - NEPHROGENIC SYSTEMIC FIBROSIS [None]
  - PANNICULITIS [None]
  - VENOUS STASIS [None]
